FAERS Safety Report 14963312 (Version 4)
Quarter: 2020Q1

REPORT INFORMATION
  Report Type: Report from Study
  Country: GB (occurrence: GB)
  Receive Date: 20180601
  Receipt Date: 20200325
  Transmission Date: 20200409
  Serious: Yes (Other)
  Sender: FDA-Public Use
  Company Number: GB-PFIZER INC-2018216278

PATIENT
  Sex: Female

DRUGS (16)
  1. TRASTUZUMAB. [Suspect]
     Active Substance: TRASTUZUMAB
     Dosage: CYCLE 2
     Route: 042
     Dates: start: 20150709, end: 20150730
  2. PERTUZUMAB. [Suspect]
     Active Substance: PERTUZUMAB
     Indication: HER-2 POSITIVE BREAST CANCER
     Dosage: CYCLE 1 ONLY
     Route: 042
     Dates: start: 20150518, end: 20150518
  3. ALENDRONIC ACID [Concomitant]
     Active Substance: ALENDRONIC ACID
     Dosage: 70 MG, WEEKLY
     Route: 048
  4. DIAZEPAM. [Concomitant]
     Active Substance: DIAZEPAM
     Dosage: 2 MG, UNK
     Route: 048
  5. DOCETAXEL. [Suspect]
     Active Substance: DOCETAXEL
     Indication: HER-2 POSITIVE BREAST CANCER
     Dosage: CYCLE 4
     Route: 042
     Dates: start: 20150519, end: 20150730
  6. TRASTUZUMAB EMTANSINE [Suspect]
     Active Substance: ADO-TRASTUZUMAB EMTANSINE
     Indication: HER-2 POSITIVE BREAST CANCER
     Dosage: 180 MG, EVERY 3 WEEKS
     Route: 042
     Dates: start: 20150813
  7. TRASTUZUMAB. [Suspect]
     Active Substance: TRASTUZUMAB
     Indication: HER-2 POSITIVE BREAST CANCER
     Dosage: RELOADING DOSE
     Route: 042
     Dates: start: 20150518, end: 20150518
  8. TRASTUZUMAB. [Suspect]
     Active Substance: TRASTUZUMAB
     Dosage: CYCLE 1RELOADING DOSE AS APPOINTMENT DELAYED
     Route: 042
     Dates: start: 20150618, end: 20150618
  9. PERTUZUMAB. [Suspect]
     Active Substance: PERTUZUMAB
     Dosage: CYCLE 3
     Route: 042
     Dates: start: 20150618, end: 20150730
  10. FLECAINIDE [Concomitant]
     Active Substance: FLECAINIDE
     Dosage: 50 MG, 2X/DAY (0.5 DAY)
     Route: 048
  11. BENZYDAMINE [Concomitant]
     Active Substance: BENZYDAMINE
     Dosage: MOUTHWASHRINSE EVERY 1 1/2-3 HRS AS REQUIRED
     Route: 048
  12. FILGRASTIM [Concomitant]
     Active Substance: FILGRASTIM
     Indication: NEUTROPHIL COUNT DECREASED
     Dosage: UNK
     Route: 058
     Dates: start: 20170125, end: 20170129
  13. RIVAROXABAN [Concomitant]
     Active Substance: RIVAROXABAN
     Dosage: 20 MG, 1X/DAY
     Route: 048
  14. FRUSEMIDE /00032601/ [Concomitant]
     Active Substance: FUROSEMIDE
     Dosage: 40 MG, DAILY
     Route: 048
     Dates: start: 20160814
  15. SERTRALINE [Concomitant]
     Active Substance: SERTRALINE HYDROCHLORIDE
     Dosage: 50 MG, 1X/DAY
     Route: 048
  16. RIVAROXABAN [Concomitant]
     Active Substance: RIVAROXABAN
     Dosage: 20 MG, 1X/DAY
     Route: 048

REACTIONS (18)
  - Abdominal pain [Recovered/Resolved]
  - Abdominal pain upper [Recovered/Resolved]
  - Poor quality sleep [Unknown]
  - Dyspepsia [Recovered/Resolved]
  - Rectal haemorrhage [Recovered/Resolved]
  - Haematemesis [Recovered/Resolved]
  - Gastrooesophageal reflux disease [Recovered/Resolved]
  - Dizziness [Recovered/Resolved]
  - Decreased appetite [Unknown]
  - Palpitations [Recovered/Resolved]
  - Fatigue [Unknown]
  - Constipation [Recovered/Resolved]
  - Abdominal distension [Recovered/Resolved]
  - Abdominal distension [Not Recovered/Not Resolved]
  - Fatigue [Not Recovered/Not Resolved]
  - Anaemia [Recovering/Resolving]
  - Nausea [Not Recovered/Not Resolved]
  - Dyspnoea [Not Recovered/Not Resolved]

NARRATIVE: CASE EVENT DATE: 20150729
